FAERS Safety Report 21602464 (Version 1)
Quarter: 2022Q4

REPORT INFORMATION
  Report Type: Spontaneous
  Country: US (occurrence: None)
  Receive Date: 20221115
  Receipt Date: 20221115
  Transmission Date: 20230113
  Serious: No
  Sender: FDA-Public Use
  Company Number: None

PATIENT
  Age: 73 Year
  Sex: Female
  Weight: 65.32 kg

DRUGS (11)
  1. CAPECITABINE [Suspect]
     Active Substance: CAPECITABINE
     Indication: Colon cancer
     Dosage: OTHER FREQUENCY : 2W,1WOFF;?
     Route: 048
  2. ACETAMINOPHEN [Concomitant]
  3. ANUSOL-HC External [Concomitant]
  4. CLARITIN [Concomitant]
  5. HYOSCYAMINE [Concomitant]
  6. LOPERAMIDE [Concomitant]
  7. MULTIVITAMIN [Concomitant]
  8. OMEPRAZOLE [Concomitant]
  9. PRESERVISION [Concomitant]
  10. SIMETHICONE [Concomitant]
  11. VITAMIN B6 [Concomitant]
     Active Substance: PYRIDOXINE HYDROCHLORIDE

REACTIONS (2)
  - Neoplasm progression [None]
  - Drug ineffective [None]
